FAERS Safety Report 6546322-X (Version None)
Quarter: 2010Q1

REPORT INFORMATION
  Report Type: 
  Country: None (occurrence: None)
  Receive Date: 20100122
  Receipt Date: 20100119
  Transmission Date: 20100710
  Serious: Yes (Hospitalization)
  Sender: FDA-Public Use
  Company Number: US-ROCHE-680205

PATIENT
  Sex: Female
  Weight: 61.2 kg

DRUGS (1)
  1. CAPECITABINE [Suspect]
     Indication: COLORECTAL CANCER
     Dosage: DOSE AND FREQUENCY REPORTED AS 1500 MG AM/PM
     Route: 048
     Dates: start: 20091103, end: 20100119

REACTIONS (2)
  - DIARRHOEA [None]
  - ELECTROLYTE DEPLETION [None]
